FAERS Safety Report 17305532 (Version 1)
Quarter: 2020Q1

REPORT INFORMATION
  Report Type: Spontaneous
  Country: FR (occurrence: FR)
  Receive Date: 20200123
  Receipt Date: 20200123
  Transmission Date: 20200409
  Serious: Yes (Hospitalization)
  Sender: FDA-Public Use
  Company Number: FR-PFIZER INC-2020026826

PATIENT
  Age: 50 Year
  Sex: Female

DRUGS (2)
  1. ALPRAZOLAM. [Suspect]
     Active Substance: ALPRAZOLAM
     Indication: POISONING DELIBERATE
     Dosage: 1 DF, SINGLE
     Route: 048
     Dates: start: 20191201, end: 20191201
  2. THERALENE [Suspect]
     Active Substance: TRIMEPRAZINE
     Indication: POISONING DELIBERATE
     Dosage: 1 DF, SINGLE
     Route: 048
     Dates: start: 20191201, end: 20191201

REACTIONS (5)
  - Hypotension [Recovered/Resolved]
  - Product use in unapproved indication [Unknown]
  - Disorientation [Recovered/Resolved]
  - Off label use [Unknown]
  - Somnolence [Recovered/Resolved]

NARRATIVE: CASE EVENT DATE: 20191201
